FAERS Safety Report 20830513 (Version 5)
Quarter: 2022Q4

REPORT INFORMATION
  Report Type: Spontaneous
  Country: US (occurrence: US)
  Receive Date: 20220514
  Receipt Date: 20221209
  Transmission Date: 20230113
  Serious: Yes (Other)
  Sender: FDA-Public Use
  Company Number: US-BRISTOL-MYERS SQUIBB COMPANY-2022-024877

PATIENT
  Age: 76 Year
  Sex: Female
  Weight: 49.9 kg

DRUGS (2)
  1. REVLIMID [Suspect]
     Active Substance: LENALIDOMIDE
     Indication: Plasma cell myeloma
     Dosage: EXPIRY DATE FOR BATCH- A3698A IS 30.JUN.24?21 DAYS ON AND 7 DAYS OFF
     Route: 048
     Dates: start: 20170901, end: 20220516
  2. XIFAXAN [Concomitant]
     Active Substance: RIFAXIMIN
     Indication: Product used for unknown indication
     Route: 065

REACTIONS (5)
  - Clostridium difficile infection [Not Recovered/Not Resolved]
  - Upper respiratory tract infection [Not Recovered/Not Resolved]
  - Decreased appetite [Unknown]
  - Hypoacusis [Unknown]
  - Diarrhoea [Unknown]
